FAERS Safety Report 4400151-1 (Version None)
Quarter: 2004Q3

REPORT INFORMATION
  Report Type: 
  Country: None (occurrence: None)
  Receive Date: 20040716
  Receipt Date: 20040614
  Transmission Date: 20050211
  Serious: Yes (Other)
  Sender: FDA-Public Use
  Company Number: USA040567978

PATIENT
  Sex: Female

DRUGS (1)
  1. HUMATROPE [Suspect]
     Dosage: 0.1 MG/1 DAY
     Dates: start: 20020101

REACTIONS (1)
  - PHARMACEUTICAL PRODUCT COMPLAINT [None]
